FAERS Safety Report 10043434 (Version 1)
Quarter: 2014Q1

REPORT INFORMATION
  Report Type: Spontaneous
  Country: US (occurrence: US)
  Receive Date: 20140328
  Receipt Date: 20140328
  Transmission Date: 20141002
  Serious: No
  Sender: FDA-Public Use
  Company Number: US-PFIZER INC-2014085595

PATIENT
  Age: 54 Year
  Sex: Male

DRUGS (3)
  1. LYRICA [Suspect]
     Indication: FIBROMYALGIA
     Dosage: 100 MG, DAILY
     Dates: start: 200909
  2. LYRICA [Suspect]
     Dosage: 50 MG, DAILY (DOSE WAS REDUCED)
  3. LYRICA [Suspect]
     Dosage: (INCREASED SLOWLY)

REACTIONS (1)
  - Euphoric mood [Recovering/Resolving]
